FAERS Safety Report 7142603-X (Version None)
Quarter: 2010Q4

REPORT INFORMATION
  Report Type: 
  Country: None (occurrence: None)
  Receive Date: 20101207
  Receipt Date: 20101129
  Transmission Date: 20110411
  Serious: Yes (Other)
  Sender: FDA-Public Use
  Company Number: US-CEPHALON-2010006199

PATIENT
  Sex: Male
  Weight: 122 kg

DRUGS (5)
  1. PROVIGIL [Suspect]
     Indication: FATIGUE
     Route: 048
     Dates: start: 20091101
  2. COUMADIN [Concomitant]
     Indication: DEEP VEIN THROMBOSIS
     Route: 048
     Dates: start: 20000101
  3. KEPPRA [Concomitant]
     Indication: CONVULSION
     Route: 048
     Dates: start: 20080101
  4. LIPITOR [Concomitant]
     Indication: BLOOD CHOLESTEROL
     Route: 048
     Dates: start: 20050101
  5. TRILIPIX [Concomitant]
     Indication: BLOOD TRIGLYCERIDES
     Route: 048
     Dates: start: 20100501

REACTIONS (2)
  - HAEMATOCRIT INCREASED [None]
  - HAEMOGLOBIN INCREASED [None]
